FAERS Safety Report 8140115-8 (Version None)
Quarter: 2012Q1

REPORT INFORMATION
  Report Type: 
  Country: None (occurrence: None)
  Receive Date: 20120216
  Receipt Date: 20120203
  Transmission Date: 20120608
  Serious: Yes (Hospitalization)
  Sender: FDA-Public Use
  Company Number: DE-AMGEN-DEUCT2011061872

PATIENT
  Age: 57 Year
  Sex: Female
  Weight: 126 kg

DRUGS (3)
  1. ETANERCEPT [Suspect]
     Indication: PSORIATIC ARTHROPATHY
     Dosage: 50 MG, QWK
     Dates: start: 20091101, end: 20110601
  2. ANTIBIOTICS [Concomitant]
     Dosage: UNK
  3. ETANERCEPT [Suspect]
     Indication: PSORIASIS

REACTIONS (1)
  - PROCTITIS [None]
